FAERS Safety Report 4772652-8 (Version None)
Quarter: 2005Q3

REPORT INFORMATION
  Report Type: 
  Country: None (occurrence: None)
  Receive Date: 20050914
  Receipt Date: 20041115
  Transmission Date: 20060218
  Serious: Yes (Hospitalization)
  Sender: FDA-Public Use
  Company Number: 163-20785-04110337

PATIENT
  Age: 72 Year
  Sex: Male

DRUGS (4)
  1. THALOMID [Suspect]
     Indication: MULTIPLE MYELOMA
     Dosage: 200 MG, QHS, ORAL
     Route: 048
     Dates: start: 20020401, end: 20041115
  2. PREDNISONE [Concomitant]
  3. COLCHICINE (COLCHICINE) [Concomitant]
  4. PERCOCET [Concomitant]

REACTIONS (3)
  - ASTHENIA [None]
  - NEUROPATHY [None]
  - OEDEMA PERIPHERAL [None]
